FAERS Safety Report 9459171 (Version 4)
Quarter: 2013Q4

REPORT INFORMATION
  Report Type: Spontaneous
  Country: JP (occurrence: JP)
  Receive Date: 20130814
  Receipt Date: 20131121
  Transmission Date: 20140711
  Serious: Yes (Hospitalization, Disabling, Other)
  Sender: FDA-Public Use
  Company Number: JP-B.I. PHARMACEUTICALS,INC./RIDGEFIELD-2013-BI-24138NB

PATIENT
  Age: 91 Year
  Sex: Female
  Weight: 52.2 kg

DRUGS (4)
  1. PRAZAXA [Suspect]
     Indication: ATRIAL FIBRILLATION
     Dosage: 220 MG
     Route: 048
  2. LOXONIN [Suspect]
     Indication: CHONDROCALCINOSIS PYROPHOSPHATE
     Dosage: 60 MG
     Route: 048
  3. TENORMIN / ATENOLOL [Concomitant]
     Route: 048
  4. LASIX / FUROSEMIDE [Concomitant]
     Route: 048

REACTIONS (8)
  - Cardiac failure congestive [Recovered/Resolved]
  - Cerebral infarction [Recovered/Resolved with Sequelae]
  - Pneumonia aspiration [Recovered/Resolved]
  - Carotid artery occlusion [Recovered/Resolved with Sequelae]
  - Gastrointestinal haemorrhage [Not Recovered/Not Resolved]
  - Melaena [Unknown]
  - Anaemia [Unknown]
  - Petechiae [Unknown]
